FAERS Safety Report 20434268 (Version 2)
Quarter: 2022Q1

REPORT INFORMATION
  Report Type: Report from Study
  Country: MX (occurrence: MX)
  Receive Date: 20220206
  Receipt Date: 20220216
  Transmission Date: 20220423
  Serious: No
  Sender: FDA-Public Use
  Company Number: MX-NOVARTISPH-NVSC2022MX023835

PATIENT
  Age: 41 Year
  Sex: Female
  Weight: 63 kg

DRUGS (5)
  1. EXFORGE [Suspect]
     Active Substance: AMLODIPINE BESYLATE\VALSARTAN
     Indication: Blood pressure increased
     Dosage: 10 MG, QD (BY MOUTH)
     Route: 048
  2. EXFORGE HCT [Suspect]
     Active Substance: AMLODIPINE BESYLATE\HYDROCHLOROTHIAZIDE\VALSARTAN
     Indication: Blood pressure increased
     Dosage: 1 DOSAGE FORM, QD
     Route: 065
  3. EXFORGE HCT [Suspect]
     Active Substance: AMLODIPINE BESYLATE\HYDROCHLOROTHIAZIDE\VALSARTAN
     Dosage: 1 DOSAGE FORM (EVERY OTHER DAY/EVERY THIRD DAY)
     Route: 048
  4. EXFORGE HCT [Suspect]
     Active Substance: AMLODIPINE BESYLATE\HYDROCHLOROTHIAZIDE\VALSARTAN
     Dosage: 1 DOSAGE FORM (5/160/12.5MG) (EVERY 12 HOURS)
     Route: 048
  5. ASTAXANTHIN [Concomitant]
     Active Substance: ASTAXANTHIN
     Indication: Antioxidant therapy
     Dosage: 1 DOSAGE FORM, QD (DAILY, DURING FAST (AS REPORTED)
     Route: 048

REACTIONS (10)
  - Eye irritation [Unknown]
  - Drug intolerance [Unknown]
  - Blood pressure decreased [Recovered/Resolved]
  - COVID-19 [Recovered/Resolved]
  - COVID-19 [Recovered/Resolved]
  - Palpitations [Unknown]
  - Blood pressure increased [Recovered/Resolved]
  - Inappropriate schedule of product administration [Not Recovered/Not Resolved]
  - Wrong technique in product usage process [Unknown]
  - Drug ineffective [Unknown]

NARRATIVE: CASE EVENT DATE: 20201001
